FAERS Safety Report 9068232 (Version 1)
Quarter: 2013Q1

REPORT INFORMATION
  Report Type: Spontaneous
  Country: IT (occurrence: IT)
  Receive Date: 20130128
  Receipt Date: 20130128
  Transmission Date: 20140127
  Serious: Yes (Death)
  Sender: FDA-Public Use
  Company Number: IT-ROCHE-1182693

PATIENT
  Age: 2 Year
  Sex: Female

DRUGS (2)
  1. BEVACIZUMAB [Suspect]
     Indication: GLIOMA
     Route: 065
  2. TEMOZOLOMIDE [Concomitant]
     Indication: GLIOMA
     Route: 065

REACTIONS (1)
  - Disease progression [Fatal]
